FAERS Safety Report 22747999 (Version 3)
Quarter: 2024Q1

REPORT INFORMATION
  Report Type: Report from Study
  Country: MX (occurrence: MX)
  Receive Date: 20230725
  Receipt Date: 20240208
  Transmission Date: 20240410
  Serious: Yes (Hospitalization, Disabling, Other)
  Sender: FDA-Public Use
  Company Number: MX-ABBVIE-5339247

PATIENT
  Sex: Male
  Weight: 74 kg

DRUGS (9)
  1. HUMIRA [Suspect]
     Active Substance: ADALIMUMAB
     Indication: Psoriasis
     Dosage: THERAPY RESTART DATE: 2023?FORM STRENGTH: 40 MG
     Route: 058
     Dates: end: 20230705
  2. HUMIRA [Suspect]
     Active Substance: ADALIMUMAB
     Dosage: THERAPY RESTART DATE: 2022? FORM STRENGTH: 40 MG
     Route: 058
     Dates: end: 202305
  3. HUMIRA [Suspect]
     Active Substance: ADALIMUMAB
     Dosage: FORM STRENGTH: 40 MG
     Route: 058
     Dates: start: 20151130, end: 202205
  4. HUMIRA [Suspect]
     Active Substance: ADALIMUMAB
     Dosage: THERAPY RESTART DATE: 2023?FORM STRENGTH: 40 MG
     Route: 058
     Dates: end: 202312
  5. METFORMIN HYDROCHLORIDE [Concomitant]
     Active Substance: METFORMIN HYDROCHLORIDE
     Indication: Diabetes mellitus
  6. LOSARTAN [Concomitant]
     Active Substance: LOSARTAN
     Indication: Hypertension
  7. METHOTREXATE [Concomitant]
     Active Substance: METHOTREXATE
     Indication: Product used for unknown indication
  8. INSULIN HUMAN [Concomitant]
     Active Substance: INSULIN HUMAN
     Indication: Diabetes mellitus
  9. Lotan [Concomitant]
     Indication: Pruritus
     Dates: start: 202306

REACTIONS (12)
  - Diabetes mellitus [Unknown]
  - Skin exfoliation [Not Recovered/Not Resolved]
  - Anxiety [Not Recovered/Not Resolved]
  - Skin exfoliation [Recovered/Resolved]
  - Gait inability [Not Recovered/Not Resolved]
  - Pruritus [Not Recovered/Not Resolved]
  - Pruritus [Recovered/Resolved]
  - Pain [Not Recovered/Not Resolved]
  - Discomfort [Not Recovered/Not Resolved]
  - Pruritus [Not Recovered/Not Resolved]
  - Blister [Not Recovered/Not Resolved]
  - Scab [Unknown]

NARRATIVE: CASE EVENT DATE: 20220101
